FAERS Safety Report 8857792 (Version 2)
Quarter: 2012Q4

REPORT INFORMATION
  Report Type: 
  Country: US (occurrence: US)
  Receive Date: 20121024
  Receipt Date: 20121121
  Transmission Date: 20130627
  Serious: No
  Sender: FDA-Public Use
  Company Number: US-ASTRAZENECA-2012SE77193

PATIENT
  Age: 57 Year
  Sex: Female
  Weight: 90.7 kg

DRUGS (4)
  1. CRESTOR [Suspect]
     Indication: BLOOD CHOLESTEROL INCREASED
     Route: 048
     Dates: start: 2010, end: 20121005
  2. LEXAPRO [Concomitant]
     Indication: DEPRESSION
     Route: 048
     Dates: end: 201207
  3. KLONOPIN [Concomitant]
     Indication: ANXIETY
     Route: 048
     Dates: start: 20121005
  4. PAXIL [Concomitant]
     Indication: ANXIETY

REACTIONS (2)
  - Platelet count decreased [Unknown]
  - Blood glucose increased [Unknown]
